FAERS Safety Report 10370295 (Version 1)
Quarter: 2014Q3

REPORT INFORMATION
  Report Type: Spontaneous
  Country: US (occurrence: None)
  Receive Date: 20140807
  Receipt Date: 20140807
  Transmission Date: 20150326
  Serious: No
  Sender: FDA-Public Use
  Company Number: None

PATIENT
  Age: 37 Year
  Sex: Female

DRUGS (1)
  1. PROTEIN [Suspect]
     Active Substance: PROTEIN
     Indication: MYCOBACTERIUM TUBERCULOSIS COMPLEX TEST
     Dosage: 0.1 ML?ANNUAL ?INTRADERMAL INJECTION
     Route: 023
     Dates: start: 20140714

REACTIONS (5)
  - Erythema [None]
  - Product quality issue [None]
  - Pruritus [None]
  - Pain [None]
  - Swelling [None]

NARRATIVE: CASE EVENT DATE: 20140714
